FAERS Safety Report 18669489 (Version 1)
Quarter: 2020Q4

REPORT INFORMATION
  Report Type: Spontaneous
  Country: AR (occurrence: AR)
  Receive Date: 20201228
  Receipt Date: 20201228
  Transmission Date: 20210114
  Serious: Yes (Other)
  Sender: FDA-Public Use
  Company Number: NVSC2020AR342519

PATIENT
  Sex: Male

DRUGS (1)
  1. EXFORGE HCT [Suspect]
     Active Substance: AMLODIPINE BESYLATE\HYDROCHLOROTHIAZIDE\VALSARTAN
     Indication: HYPERTENSION
     Dosage: UNK (5 MG AMLODIPINE/ 160 MG VALSARTAN/ 25 HYDROCHLOROTHIAZIDE)
     Route: 065

REACTIONS (4)
  - Deafness [Unknown]
  - Nervousness [Unknown]
  - Diabetes mellitus [Unknown]
  - Screaming [Unknown]
